FAERS Safety Report 5074149-7 (Version None)
Quarter: 2006Q3

REPORT INFORMATION
  Report Type: 
  Country: None (occurrence: None)
  Receive Date: 20060802
  Receipt Date: 20060720
  Transmission Date: 20061208
  Serious: Yes (Hospitalization, Other)
  Sender: FDA-Public Use
  Company Number: 2006091679

PATIENT
  Age: 64 Year
  Sex: Female
  Weight: 66.2252 kg

DRUGS (2)
  1. BEXTRA [Suspect]
     Indication: MYALGIA
     Dosage: 20 MG (20 MG, 1 IN 1 D)
     Dates: start: 20030301, end: 20041226
  2. CELEBREX [Suspect]
     Indication: DRUG USE FOR UNKNOWN INDICATION

REACTIONS (7)
  - AMNESIA [None]
  - ANXIETY [None]
  - BRAIN DAMAGE [None]
  - CARDIAC DISORDER [None]
  - CEREBROVASCULAR ACCIDENT [None]
  - CONVULSION [None]
  - DEPRESSION [None]
